FAERS Safety Report 6155342-9 (Version None)
Quarter: 2009Q2

REPORT INFORMATION
  Report Type: 
  Country: None (occurrence: None)
  Receive Date: 20090415
  Receipt Date: 20090407
  Transmission Date: 20091009
  Serious: Yes (Other)
  Sender: FDA-Public Use
  Company Number: CH-ASTRAZENECA-2009PK00949

PATIENT
  Age: 810 Month
  Sex: Male
  Weight: 88 kg

DRUGS (5)
  1. CASODEX [Suspect]
     Indication: PROSTATE CANCER
     Route: 048
     Dates: start: 20080307
  2. ASPIRIN [Concomitant]
     Indication: HYPERTENSION
     Dates: start: 19990101
  3. MEPHAM [Concomitant]
     Indication: HYPERTENSION
     Dates: start: 20080101
  4. EPROFARPANUM [Concomitant]
     Indication: HYPERTENSION
  5. METO ZEROK [Concomitant]
     Indication: HYPERTENSION
     Dates: start: 20080101

REACTIONS (2)
  - LOOSE TOOTH [None]
  - TOOTH FRACTURE [None]
